FAERS Safety Report 6860889-3 (Version None)
Quarter: 2010Q3

REPORT INFORMATION
  Report Type: 
  Country: None (occurrence: None)
  Receive Date: 20100720
  Receipt Date: 20100706
  Transmission Date: 20110219
  Serious: Yes (Disabling, Other)
  Sender: FDA-Public Use
  Company Number: US-ELI_LILLY_AND_COMPANY-US201007001968

PATIENT
  Sex: Female

DRUGS (3)
  1. FORTEO [Suspect]
     Indication: OSTEOPOROSIS
     Dosage: 20 UG, DAILY (1/D)
     Dates: start: 20100508, end: 20100528
  2. SYNTHROID [Concomitant]
  3. VITAMIN D [Concomitant]

REACTIONS (5)
  - ACTIVITIES OF DAILY LIVING IMPAIRED [None]
  - BACK PAIN [None]
  - DISABILITY [None]
  - INJECTION SITE ERYTHEMA [None]
  - PAIN IN EXTREMITY [None]
